FAERS Safety Report 5202464-2 (Version None)
Quarter: 2006Q4

REPORT INFORMATION
  Report Type: 
  Country: None (occurrence: None)
  Receive Date: 20061010
  Receipt Date: 20050829
  Transmission Date: 20070319
  Serious: Yes (Life-Threatening)
  Sender: FDA-Public Use
  Company Number: 2005P1000566

PATIENT
  Age: 62 Year
  Sex: Male

DRUGS (10)
  1. RETEPLASE (RETEPLASE) [Suspect]
     Indication: ACUTE MYOCARDIAL INFARCTION
  2. ABCIXIMAB (ABCIXIMAB) [Suspect]
     Indication: ACUTE MYOCARDIAL INFARCTION
  3. NIFEDIPINE [Concomitant]
  4. GLYCERYL TRINITRATE [Concomitant]
  5. ISOSORBIDE MONONITRATE [Concomitant]
  6. RAMIPRIL [Concomitant]
  7. BISOPROLOL FUMARATE [Concomitant]
  8. NICORANDIL [Concomitant]
  9. FLUVASTATIN [Concomitant]
  10. DIAZEPAM [Concomitant]

REACTIONS (1)
  - VENTRICULAR FIBRILLATION [None]
